FAERS Safety Report 4407331-X (Version None)
Quarter: 2004Q3

REPORT INFORMATION
  Report Type: 
  Country: None (occurrence: None)
  Receive Date: 20040721
  Receipt Date: 20040709
  Transmission Date: 20050211
  Serious: Yes (Hospitalization)
  Sender: FDA-Public Use
  Company Number: US-JNJFOC-20040702696

PATIENT
  Sex: Female

DRUGS (1)
  1. DURAGESIC [Suspect]
     Indication: PAIN
     Dosage: INTRAVENOUS
     Route: 042

REACTIONS (3)
  - DRUG ABUSER [None]
  - MEDICATION ERROR [None]
  - RESPIRATORY ARREST [None]
